FAERS Safety Report 19899693 (Version 1)
Quarter: 2021Q3

REPORT INFORMATION
  Report Type: Spontaneous
  Country: US (occurrence: US)
  Receive Date: 20210929
  Receipt Date: 20210929
  Transmission Date: 20211014
  Serious: No
  Sender: FDA-Public Use
  Company Number: US-ASTRAZENECA-2021A733769

PATIENT
  Sex: Female
  Weight: 64.4 kg

DRUGS (1)
  1. FARXIGA [Suspect]
     Active Substance: DAPAGLIFLOZIN PROPANEDIOL
     Indication: DIABETES MELLITUS
     Route: 048

REACTIONS (9)
  - Weight decreased [Unknown]
  - Sleep disorder [Unknown]
  - Somnolence [Unknown]
  - Pollakiuria [Unknown]
  - Discomfort [Unknown]
  - Hyperhidrosis [Unknown]
  - Ill-defined disorder [Unknown]
  - Fatigue [Unknown]
  - Tremor [Recovered/Resolved]
